FAERS Safety Report 20079195 (Version 3)
Quarter: 2022Q2

REPORT INFORMATION
  Report Type: Report from Study
  Country: CA (occurrence: CA)
  Receive Date: 20211117
  Receipt Date: 20220527
  Transmission Date: 20220721
  Serious: Yes (Hospitalization, Other)
  Sender: FDA-Public Use
  Company Number: CA-JNJFOC-20210944075

PATIENT
  Age: 21 Year
  Sex: Female
  Weight: 136 kg

DRUGS (3)
  1. REMICADE [Suspect]
     Active Substance: INFLIXIMAB
     Indication: Crohn^s disease
     Route: 042
     Dates: start: 20200820
  2. REMICADE [Suspect]
     Active Substance: INFLIXIMAB
     Dosage: DOSE INCREASED
     Route: 042
  3. REMICADE [Suspect]
     Active Substance: INFLIXIMAB
     Route: 042

REACTIONS (16)
  - Skin ulcer [Unknown]
  - Hospitalisation [Unknown]
  - Haematochezia [Not Recovered/Not Resolved]
  - Clostridium difficile infection [Unknown]
  - Abdominal pain [Unknown]
  - Diarrhoea [Unknown]
  - Defaecation urgency [Unknown]
  - Frequent bowel movements [Not Recovered/Not Resolved]
  - Mouth ulceration [Not Recovered/Not Resolved]
  - Myalgia [Not Recovered/Not Resolved]
  - Arthralgia [Not Recovered/Not Resolved]
  - Malaise [Not Recovered/Not Resolved]
  - Back pain [Unknown]
  - Inflammation [Unknown]
  - Pollakiuria [Unknown]
  - Dysuria [Unknown]

NARRATIVE: CASE EVENT DATE: 20200801
